FAERS Safety Report 19776849 (Version 1)
Quarter: 2021Q3

REPORT INFORMATION
  Report Type: Spontaneous
  Country: US (occurrence: US)
  Receive Date: 20210902
  Receipt Date: 20210902
  Transmission Date: 20211014
  Serious: No
  Sender: FDA-Public Use
  Company Number: US-DRREDDYS-SPO/USA/21/0139493

PATIENT
  Sex: Female

DRUGS (1)
  1. BUPRENORPHINE AND NALOXONE SUBLINGUAL FILM 2 MG/0.5 MG AND 8MG/2MG [Suspect]
     Active Substance: BUPRENORPHINE\NALOXONE
     Indication: PAIN
     Dosage: BUPRENORPHINE 8 MG AND NALOXONE 2 MG SUBLINGUAL FILM
     Route: 060
     Dates: start: 20210823

REACTIONS (3)
  - Underdose [Unknown]
  - Product packaging issue [Unknown]
  - Drug ineffective for unapproved indication [Unknown]
